FAERS Safety Report 25112693 (Version 2)
Quarter: 2025Q1

REPORT INFORMATION
  Report Type: Spontaneous
  Country: GB (occurrence: GB)
  Receive Date: 20250324
  Receipt Date: 20250328
  Transmission Date: 20250409
  Serious: Yes (Hospitalization)
  Sender: PFIZER
  Company Number: GB-PFM-2025-01372

PATIENT
  Age: 11 Year
  Sex: Female
  Weight: 49.7 kg

DRUGS (2)
  1. BINIMETINIB [Suspect]
     Active Substance: BINIMETINIB
     Indication: Craniopharyngioma
     Route: 048
     Dates: start: 20241114, end: 20250314
  2. BINIMETINIB [Suspect]
     Active Substance: BINIMETINIB
     Route: 048
     Dates: start: 20250315

REACTIONS (7)
  - Pyrexia [Recovered/Resolved]
  - Paronychia [Recovered/Resolved]
  - Paronychia [Recovering/Resolving]
  - Off label use [Unknown]
  - Product use in unapproved indication [Unknown]
  - Product use issue [Unknown]
  - Product use issue [Unknown]

NARRATIVE: CASE EVENT DATE: 20241114
